FAERS Safety Report 6437886-5 (Version None)
Quarter: 2009Q4

REPORT INFORMATION
  Report Type: 
  Country: None (occurrence: None)
  Receive Date: 20091112
  Receipt Date: 20081018
  Transmission Date: 20100525
  Serious: No
  Sender: FDA-Public Use
  Company Number: US-ASTRAZENECA-2009UW15517

PATIENT
  Age: 89 Year
  Sex: Female

DRUGS (2)
  1. PRILOSEC OTC [Suspect]
     Indication: PROPHYLAXIS
     Route: 048
  2. LEVOXYL [Concomitant]

REACTIONS (4)
  - CHEST PAIN [None]
  - HYPOPHAGIA [None]
  - NAUSEA [None]
  - VOMITING [None]
